FAERS Safety Report 8732751 (Version 2)
Quarter: 2012Q4

REPORT INFORMATION
  Report Type: 
  Country: GB (occurrence: GB)
  Receive Date: 20120820
  Receipt Date: 20120831
  Transmission Date: 20130627
  Serious: Yes (Hospitalization)
  Sender: FDA-Public Use
  Company Number: GB-B.I. PHARMACEUTICALS,INC./RIDGEFIELD-2012-UK-01084UK

PATIENT
  Age: 70 None
  Sex: Female

DRUGS (9)
  1. TRAJENTA [Suspect]
     Indication: TYPE 2 DIABETES MELLITUS
     Dosage: 5 mg
     Route: 048
     Dates: start: 20120801, end: 20120806
  2. PERINDOPRIL [Concomitant]
     Dosage: 8 mg
     Dates: end: 20120813
  3. SPIRONOLACTONE [Concomitant]
     Dosage: 25 mg
     Dates: end: 20120813
  4. WARFARIN [Concomitant]
     Dosage: as dir
  5. LANSOPRAZOLE [Concomitant]
     Dosage: 30 mg
  6. FUROSEMIDE [Concomitant]
     Dosage: 40 mg
  7. DIGOXIN [Concomitant]
     Dosage: 6.25 mg
  8. HYDRALAZINE [Concomitant]
     Indication: CARDIAC FAILURE
     Dosage: 25 mg
  9. ISOS MONO [Concomitant]
     Dosage: 20 mg

REACTIONS (3)
  - Renal failure acute [Not Recovered/Not Resolved]
  - Urinary tract infection [Not Recovered/Not Resolved]
  - Malaise [Not Recovered/Not Resolved]
